FAERS Safety Report 25602678 (Version 2)
Quarter: 2025Q3

REPORT INFORMATION
  Report Type: Spontaneous
  Country: US (occurrence: US)
  Receive Date: 20250724
  Receipt Date: 20250805
  Transmission Date: 20251021
  Serious: Yes (Life-Threatening)
  Sender: BAUSCH AND LOMB
  Company Number: US-MLMSERVICE-20250710-PI573107-00217-1

PATIENT
  Age: 70 Year
  Sex: Female

DRUGS (7)
  1. METFORMIN [Suspect]
     Active Substance: METFORMIN HYDROCHLORIDE
     Indication: Diabetes mellitus
     Route: 065
  2. METOPROLOL [Concomitant]
     Active Substance: METOPROLOL
     Indication: Product used for unknown indication
  3. AMLODIPINE [Concomitant]
     Active Substance: AMLODIPINE BESYLATE
     Indication: Product used for unknown indication
  4. HYDROCHLOROTHIAZIDE [Concomitant]
     Active Substance: HYDROCHLOROTHIAZIDE
     Indication: Product used for unknown indication
  5. LOSARTAN [Concomitant]
     Active Substance: LOSARTAN
     Indication: Product used for unknown indication
  6. INSULIN GLARGINE [Concomitant]
     Active Substance: INSULIN GLARGINE
     Indication: Product used for unknown indication
  7. INSULIN ASPART [Concomitant]
     Active Substance: INSULIN ASPART
     Indication: Product used for unknown indication

REACTIONS (7)
  - Left ventricular dysfunction [Unknown]
  - Bradycardia [Unknown]
  - Shock [Unknown]
  - Lactic acidosis [Unknown]
  - Hypotension [Unknown]
  - Hypothermia [Unknown]
  - Sepsis [Unknown]
